FAERS Safety Report 4714040-6 (Version None)
Quarter: 2005Q3

REPORT INFORMATION
  Report Type: 
  Country: None (occurrence: None)
  Receive Date: 20050712
  Receipt Date: 20050628
  Transmission Date: 20060218
  Serious: Yes (Other)
  Sender: FDA-Public Use
  Company Number: GBWYE783429JUN05

PATIENT
  Sex: Female

DRUGS (1)
  1. MYAMBUTOL [Suspect]
     Indication: TUBERCULOSIS
     Dosage: 047
     Route: 048
     Dates: start: 20050101

REACTIONS (2)
  - BLISTER [None]
  - PHOTOSENSITIVITY REACTION [None]
